FAERS Safety Report 5432536-9 (Version None)
Quarter: 2007Q3

REPORT INFORMATION
  Report Type: 
  Country: None (occurrence: None)
  Receive Date: 20070831
  Receipt Date: 20070827
  Transmission Date: 20080115
  Serious: Yes (Other)
  Sender: FDA-Public Use
  Company Number: PHNU2007DE02149

PATIENT
  Sex: Male

DRUGS (1)
  1. LEPONEX [Suspect]
     Route: 048
     Dates: start: 20050101

REACTIONS (3)
  - GAMMA-GLUTAMYLTRANSFERASE INCREASED [None]
  - HEPATITIS C [None]
  - TRANSAMINASES INCREASED [None]
